FAERS Safety Report 23248702 (Version 1)
Quarter: 2023Q4

REPORT INFORMATION
  Report Type: Spontaneous
  Country: RO (occurrence: RO)
  Receive Date: 20231201
  Receipt Date: 20231201
  Transmission Date: 20240110
  Serious: Yes (Other)
  Sender: FDA-Public Use
  Company Number: RO-ALKEM LABORATORIES LIMITED-TW-ALKEM-2023-12626

PATIENT
  Age: 29 Year
  Sex: Female

DRUGS (5)
  1. EVEROLIMUS [Suspect]
     Active Substance: EVEROLIMUS
     Indication: Immunosuppressant drug therapy
     Dosage: 1.5 MG/DAY, LOWER DOSE, FROM THE 28 WEEKS OF GESTATION
     Route: 065
  2. EVEROLIMUS [Suspect]
     Active Substance: EVEROLIMUS
     Dosage: 1 MG/DAY, DECREASED DOSE, FROM THE 28 WEEKS OF GESTATION
     Route: 065
  3. EVEROLIMUS [Suspect]
     Active Substance: EVEROLIMUS
     Dosage: 2 MILLIGRAM
     Route: 065
  4. TACROLIMUS [Suspect]
     Active Substance: TACROLIMUS
     Indication: Immunosuppressant drug therapy
     Dosage: 4.5 MG/DAY
     Route: 065
  5. SOLU-MEDROL [Suspect]
     Active Substance: METHYLPREDNISOLONE SODIUM SUCCINATE
     Indication: Transplant rejection
     Dosage: UNK
     Route: 065

REACTIONS (3)
  - Transplant rejection [Recovered/Resolved]
  - Premature delivery [Unknown]
  - Exposure during pregnancy [Unknown]
